FAERS Safety Report 12423626 (Version 1)
Quarter: 2016Q2

REPORT INFORMATION
  Report Type: Spontaneous
  Country: US (occurrence: US)
  Receive Date: 20160601
  Receipt Date: 20160601
  Transmission Date: 20160815
  Serious: No
  Sender: FDA-Public Use
  Company Number: US-NOVEN PHARMACEUTICALS, INC.-US2015000670

PATIENT
  Age: 10 Year
  Sex: Female

DRUGS (2)
  1. DAYTRANA [Suspect]
     Active Substance: METHYLPHENIDATE
     Indication: ATTENTION DEFICIT/HYPERACTIVITY DISORDER
     Dosage: 10 MG, UNKNOWN
     Route: 062
     Dates: start: 20150807, end: 20150807
  2. FOCALIN [Concomitant]
     Active Substance: DEXMETHYLPHENIDATE HYDROCHLORIDE
     Dosage: 30 MG, UNK

REACTIONS (5)
  - Application site burn [Unknown]
  - Application site haemorrhage [Unknown]
  - Drug ineffective [Unknown]
  - Application site erythema [Unknown]
  - Product quality issue [Unknown]

NARRATIVE: CASE EVENT DATE: 20150807
